FAERS Safety Report 4423680-3 (Version None)
Quarter: 2004Q3

REPORT INFORMATION
  Report Type: 
  Country: None (occurrence: None)
  Receive Date: 20040806
  Receipt Date: 20040724
  Transmission Date: 20050211
  Serious: Yes (Other)
  Sender: FDA-Public Use
  Company Number: 2004225669CA

PATIENT
  Age: 27 Year
  Sex: Female
  Weight: 79.4 kg

DRUGS (2)
  1. DEPO-PROVERA [Suspect]
     Indication: CONTRACEPTION
     Dosage: 150  MG/3 MONTHS 1ST INJ INTRAMUSCULAR
     Route: 030
     Dates: start: 20010724, end: 20010724
  2. DEPO-PROVERA [Suspect]
     Indication: CONTRACEPTION
     Dosage: 150  MG/3 MONTHS 1ST INJ INTRAMUSCULAR
     Route: 030
     Dates: start: 20040720, end: 20040720

REACTIONS (5)
  - DRUG EFFECT DECREASED [None]
  - INADEQUATE ANALGESIA [None]
  - INJECTION SITE MASS [None]
  - JOINT INJURY [None]
  - ROAD TRAFFIC ACCIDENT [None]
